FAERS Safety Report 13327361 (Version 1)
Quarter: 2017Q1

REPORT INFORMATION
  Report Type: Spontaneous
  Country: US (occurrence: US)
  Receive Date: 20170313
  Receipt Date: 20170313
  Transmission Date: 20170428
  Serious: No
  Sender: FDA-Public Use
  Company Number: US-JNJFOC-20161221263

PATIENT
  Age: 77 Year
  Sex: Female
  Weight: 65.32 kg

DRUGS (8)
  1. WOMENS ROGAINE UNSCENTED [Suspect]
     Active Substance: MINOXIDIL
     Route: 061
  2. XANAX [Concomitant]
     Active Substance: ALPRAZOLAM
     Indication: ANXIETY
     Dosage: 7 TO 8 YEARS
     Route: 065
  3. RETIN-A [Concomitant]
     Active Substance: TRETINOIN
     Indication: SOLAR LENTIGO
     Route: 065
  4. WOMENS ROGAINE UNSCENTED [Suspect]
     Active Substance: MINOXIDIL
     Indication: ALOPECIA
     Dosage: HALF CAPFUL, SOMETIMES A LITTLE MORE
     Route: 061
  5. NORVASC [Concomitant]
     Active Substance: AMLODIPINE BESYLATE
     Indication: HYPERTENSION
     Route: 065
     Dates: start: 201608
  6. HYDROCHLOROTHIAZIDE. [Concomitant]
     Active Substance: HYDROCHLOROTHIAZIDE
     Indication: DIURETIC THERAPY
     Route: 065
  7. RETIN-A [Concomitant]
     Active Substance: TRETINOIN
     Indication: SKIN CANCER
     Route: 065
  8. TOPROL XL [Concomitant]
     Active Substance: METOPROLOL SUCCINATE
     Indication: HYPERTENSION
     Route: 065
     Dates: start: 201609

REACTIONS (5)
  - Intentional product use issue [Unknown]
  - Alopecia [Not Recovered/Not Resolved]
  - Intentional product misuse [Unknown]
  - Therapeutic response unexpected [Unknown]
  - Overdose [Unknown]

NARRATIVE: CASE EVENT DATE: 20161222
